FAERS Safety Report 19382706 (Version 2)
Quarter: 2021Q3

REPORT INFORMATION
  Report Type: Other
  Country: CA (occurrence: CA)
  Receive Date: 20210607
  Receipt Date: 20210706
  Transmission Date: 20211014
  Serious: Yes (Hospitalization)
  Sender: FDA-Public Use
  Company Number: CA-ROCHE-2839136

PATIENT
  Age: 38 Year
  Sex: Male

DRUGS (4)
  1. AMOXICLAV [Concomitant]
     Active Substance: AMOXICILLIN\CLAVULANATE POTASSIUM
  2. TYLENOL [Concomitant]
     Active Substance: ACETAMINOPHEN
  3. OCREVUS [Suspect]
     Active Substance: OCRELIZUMAB
     Indication: RELAPSING-REMITTING MULTIPLE SCLEROSIS
     Route: 042
     Dates: start: 20190522
  4. ANTIBIOTICS [Concomitant]
     Active Substance: UNSPECIFIED INGREDIENT

REACTIONS (4)
  - Pyrexia [Recovered/Resolved]
  - Splenomegaly [Unknown]
  - Liver disorder [Unknown]
  - Infection [Unknown]

NARRATIVE: CASE EVENT DATE: 20210514
